FAERS Safety Report 20226170 (Version 1)
Quarter: 2021Q4

REPORT INFORMATION
  Report Type: Spontaneous
  Country: US (occurrence: US)
  Receive Date: 20211224
  Receipt Date: 20211224
  Transmission Date: 20220303
  Serious: Yes (Other)
  Sender: FDA-Public Use
  Company Number: US-BAUSCH-BL-2021-033298

PATIENT
  Sex: Female

DRUGS (1)
  1. SOOTHE XP [Suspect]
     Active Substance: LIGHT MINERAL OIL\MINERAL OIL
     Indication: Dry eye
     Route: 047

REACTIONS (7)
  - Cataract operation [Unknown]
  - Instillation site discomfort [Unknown]
  - Dry eye [Unknown]
  - Instillation site pain [Recovering/Resolving]
  - Vision blurred [Recovering/Resolving]
  - Patient dissatisfaction with treatment [Unknown]
  - Drug ineffective [Unknown]

NARRATIVE: CASE EVENT DATE: 20210101
